FAERS Safety Report 4601401-9 (Version None)
Quarter: 2005Q1

REPORT INFORMATION
  Report Type: 
  Country: None (occurrence: None)
  Receive Date: 20050202
  Receipt Date: 20040713
  Transmission Date: 20050727
  Serious: Yes (Hospitalization)
  Sender: FDA-Public Use
  Company Number: 8006827

PATIENT
  Age: 7 Year
  Sex: Male
  Weight: 20.9 kg

DRUGS (3)
  1. KEPPRA [Suspect]
     Indication: EPILEPSY
     Dosage: 1250 MG /D
     Dates: start: 20010925
  2. ZONISAMIDE [Suspect]
     Indication: EPILEPSY
  3. PHENYTOIN [Suspect]
     Indication: EPILEPSY
     Dosage: 125 MG / D
     Dates: start: 20011001

REACTIONS (1)
  - CONVULSION [None]
